FAERS Safety Report 8832007 (Version 3)
Quarter: 2014Q1

REPORT INFORMATION
  Report Type: Spontaneous
  Country: US (occurrence: US)
  Receive Date: 20121009
  Receipt Date: 20140116
  Transmission Date: 20141002
  Serious: Yes (Death, Life-Threatening, Hospitalization, Other)
  Sender: FDA-Public Use
  Company Number: US-MERCK-1210USA001136

PATIENT
  Sex: Male
  Weight: 97.52 kg

DRUGS (2)
  1. JANUVIA [Suspect]
     Indication: TYPE 2 DIABETES MELLITUS
     Dosage: 100 MG, QD
     Route: 048
     Dates: start: 20110929, end: 201202
  2. JANUVIA [Suspect]
     Dosage: 50 MG, UNK
     Route: 048
     Dates: start: 20120223, end: 20120324

REACTIONS (2)
  - Adenocarcinoma pancreas [Fatal]
  - Constipation [Unknown]
